FAERS Safety Report 4649098-6 (Version None)
Quarter: 2005Q2

REPORT INFORMATION
  Report Type: 
  Country: None (occurrence: None)
  Receive Date: 20050429
  Receipt Date: 20050428
  Transmission Date: 20051028
  Serious: Yes (Disabling, Other)
  Sender: FDA-Public Use
  Company Number: US-GLAXOSMITHKLINE-A0556206A

PATIENT
  Age: 28 Year
  Sex: Male

DRUGS (2)
  1. IMITREX [Suspect]
     Indication: MIGRAINE
     Dosage: 100MG AS REQUIRED
     Route: 048
     Dates: start: 20050427, end: 20050427
  2. SUBUTEX [Concomitant]

REACTIONS (7)
  - DYSPNOEA [None]
  - FLANK PAIN [None]
  - NAUSEA [None]
  - PRURITUS [None]
  - RASH [None]
  - TREMOR [None]
  - URINARY RETENTION [None]
